FAERS Safety Report 8878266 (Version 1)
Quarter: 2012Q4

REPORT INFORMATION
  Report Type: 
  Country: US (occurrence: US)
  Receive Date: 20121025
  Receipt Date: 20121025
  Transmission Date: 20130627
  Serious: No
  Sender: FDA-Public Use
  Company Number: US-AMGEN-USASP2012021914

PATIENT
  Sex: Female
  Weight: 86.17 kg

DRUGS (3)
  1. ENBREL [Suspect]
     Indication: PSORIATIC ARTHROPATHY
     Dosage: 50 mg, qwk
     Route: 058
     Dates: end: 201110
  2. MELATONIN [Concomitant]
     Dosage: UNK
  3. PROZAC [Concomitant]
     Dosage: UNK

REACTIONS (1)
  - Pustular psoriasis [Unknown]
